FAERS Safety Report 9104237 (Version 2)
Quarter: 2013Q4

REPORT INFORMATION
  Report Type: Report from Study
  Country: US (occurrence: US)
  Receive Date: 20130219
  Receipt Date: 20131121
  Transmission Date: 20140711
  Serious: Yes (Disabling)
  Sender: FDA-Public Use
  Company Number: PHEH2013US002501

PATIENT
  Sex: Female

DRUGS (1)
  1. GLEEVEC [Suspect]
     Indication: CHRONIC MYELOID LEUKAEMIA
     Dosage: 400 MG, DAILY
     Route: 048
     Dates: start: 20101210

REACTIONS (5)
  - Gait disturbance [Unknown]
  - Sleep disorder [Unknown]
  - Vitamin D decreased [Unknown]
  - Muscle injury [Unknown]
  - Muscle spasms [Unknown]
